FAERS Safety Report 20412111 (Version 3)
Quarter: 2022Q2

REPORT INFORMATION
  Report Type: Spontaneous
  Country: IR (occurrence: IR)
  Receive Date: 20220201
  Receipt Date: 20220413
  Transmission Date: 20220721
  Serious: Yes (Death, Hospitalization)
  Sender: FDA-Public Use
  Company Number: IR-BIOMARINAP-IR-2022-141158

PATIENT
  Age: 13 Year
  Sex: Female

DRUGS (2)
  1. ALDURAZYME [Suspect]
     Active Substance: LARONIDASE
     Indication: Mucopolysaccharidosis I
     Dosage: 100 INTERNATIONAL UNIT
     Route: 042
     Dates: end: 20220106
  2. CAPTOPRIL [Concomitant]
     Active Substance: CAPTOPRIL
     Indication: Product used for unknown indication

REACTIONS (2)
  - Respiratory disorder [Fatal]
  - Cardiac disorder [Fatal]

NARRATIVE: CASE EVENT DATE: 20220101
